FAERS Safety Report 6704753-9 (Version None)
Quarter: 2010Q2

REPORT INFORMATION
  Report Type: 
  Country: None (occurrence: None)
  Receive Date: 20100430
  Receipt Date: 20091109
  Transmission Date: 20101027
  Serious: No
  Sender: FDA-Public Use
  Company Number: US-BAUSCH-2009BL005840

PATIENT
  Age: 77 Year
  Sex: Male
  Weight: 90 kg

DRUGS (2)
  1. ALREX [Suspect]
     Indication: EYE ALLERGY
     Route: 047
     Dates: start: 20090701, end: 20091101
  2. ALREX [Suspect]
     Route: 047
     Dates: start: 20090701, end: 20091101

REACTIONS (3)
  - ABNORMAL SENSATION IN EYE [None]
  - INSTILLATION SITE IRRITATION [None]
  - OCULAR HYPERAEMIA [None]
